FAERS Safety Report 9443860 (Version 3)
Quarter: 2014Q2

REPORT INFORMATION
  Report Type: Spontaneous
  Country: BR (occurrence: BR)
  Receive Date: 20130806
  Receipt Date: 20140423
  Transmission Date: 20141212
  Serious: No
  Sender: FDA-Public Use
  Company Number: BR-ROCHE-1257735

PATIENT
  Sex: Female
  Weight: 83 kg

DRUGS (1)
  1. ROACUTAN [Suspect]
     Indication: ACNE
     Route: 065
     Dates: start: 20130126, end: 20130727

REACTIONS (1)
  - Pregnancy [Unknown]
